FAERS Safety Report 12348626 (Version 1)
Quarter: 2016Q2

REPORT INFORMATION
  Report Type: Report from Study
  Country: JP (occurrence: JP)
  Receive Date: 20160509
  Receipt Date: 20160509
  Transmission Date: 20160815
  Serious: Yes (Hospitalization)
  Sender: FDA-Public Use
  Company Number: PHHO2011JP02609

PATIENT
  Age: 63 Year
  Sex: Male
  Weight: 81 kg

DRUGS (28)
  1. ALDACTONE [Concomitant]
     Active Substance: SPIRONOLACTONE
     Dosage: 25 MG, QD
     Route: 048
     Dates: start: 20110211
  2. LENDORMIN [Concomitant]
     Active Substance: BROTIZOLAM
     Indication: INSOMNIA
     Dosage: 0.5 MG, UNK
     Route: 048
     Dates: start: 20101015, end: 20110205
  3. FEBURIC [Concomitant]
     Active Substance: FEBUXOSTAT
     Indication: HYPERURICAEMIA
     Dosage: 20 MG, QD
     Route: 048
     Dates: start: 20130319
  4. ALISKIREN [Suspect]
     Active Substance: ALISKIREN
     Indication: CARDIAC FAILURE CHRONIC
     Dosage: 300 MG
     Route: 048
     Dates: start: 20100611, end: 20110205
  5. VOLTAREN [Concomitant]
     Active Substance: DICLOFENAC SODIUM
     Dosage: UNK
     Route: 061
     Dates: start: 20110422
  6. ENALAPRIL MALEATE. [Concomitant]
     Active Substance: ENALAPRIL MALEATE
     Dosage: 10 MG, BID
     Route: 048
     Dates: start: 20100507, end: 20100611
  7. VOLTAREN [Concomitant]
     Active Substance: DICLOFENAC SODIUM
     Indication: ANALGESIC THERAPY
     Dosage: UNK
     Route: 061
     Dates: start: 20100521, end: 20110205
  8. ARTIST [Concomitant]
     Active Substance: CARVEDILOL
     Indication: CARDIAC FAILURE CHRONIC
     Dosage: 5 MG, BID
     Route: 048
     Dates: start: 20101015, end: 20110205
  9. LASIX [Concomitant]
     Active Substance: FUROSEMIDE
     Indication: CARDIAC FAILURE CHRONIC
     Dosage: 40 MG, QD
     Route: 048
     Dates: start: 20101015
  10. MAINTATE [Concomitant]
     Active Substance: BISOPROLOL FUMARATE
     Indication: CARDIAC FAILURE CHRONIC
     Dosage: 5 MG, QD
     Route: 048
     Dates: start: 20110226
  11. ENALAPRIL [Suspect]
     Active Substance: ENALAPRIL
     Dosage: 10 MG, BID
     Dates: start: 20110610, end: 20140623
  12. ENALAPRIL MALEATE. [Concomitant]
     Active Substance: ENALAPRIL MALEATE
     Indication: CARDIAC FAILURE CHRONIC
     Dosage: 5 MG, BID
     Route: 048
     Dates: start: 20100405, end: 20100507
  13. ENALAPRIL MALEATE. [Concomitant]
     Active Substance: ENALAPRIL MALEATE
     Dosage: UNK
     Route: 048
     Dates: start: 20140623, end: 20141222
  14. DIART [Concomitant]
     Active Substance: AZOSEMIDE
     Dosage: 60 MG, QD
     Route: 048
     Dates: start: 20110209
  15. SALOBEL [Concomitant]
     Active Substance: ALLOPURINOL
     Indication: HYPERURICAEMIA
     Dosage: 100 MG, BID
     Route: 048
     Dates: start: 20101015, end: 20110205
  16. LASIX [Concomitant]
     Active Substance: FUROSEMIDE
     Dosage: 40 MG, QD
     Route: 048
     Dates: start: 20101015, end: 20110205
  17. WARFARIN [Concomitant]
     Active Substance: WARFARIN
     Indication: THROMBOSIS PROPHYLAXIS
     Dosage: 0.5 MG, QD
     Route: 048
     Dates: start: 20101015, end: 20110205
  18. LIVALO [Concomitant]
     Active Substance: PITAVASTATIN CALCIUM
     Indication: DYSLIPIDAEMIA
     Dosage: 2 MG, QD
     Route: 048
     Dates: start: 20110303
  19. ENALAPRIL [Suspect]
     Active Substance: ENALAPRIL
     Indication: CARDIAC FAILURE
     Dosage: 10 MG, BID
     Route: 048
     Dates: start: 20100611, end: 20110205
  20. ENALAPRIL MALEATE. [Concomitant]
     Active Substance: ENALAPRIL MALEATE
     Dosage: 2.5 MG, BID
     Route: 048
     Dates: start: 20141223
  21. TAKEPRON [Concomitant]
     Active Substance: LANSOPRAZOLE
     Indication: CHRONIC GASTRITIS
     Dosage: 30 MG, UNK
     Route: 048
     Dates: start: 20101015, end: 20110205
  22. LASIX [Concomitant]
     Active Substance: FUROSEMIDE
     Dosage: UNK
     Route: 065
     Dates: start: 20150107
  23. WARFARIN [Concomitant]
     Active Substance: WARFARIN
     Dosage: 1.5 MG, QD
     Route: 065
     Dates: start: 20121210
  24. DEPAKENE [Concomitant]
     Active Substance: VALPROIC ACID
     Indication: DELIRIUM
     Dosage: 100 MG, BID
     Route: 048
     Dates: start: 20110215
  25. TAKEPRON [Concomitant]
     Active Substance: LANSOPRAZOLE
     Dosage: 30 MG, QD
     Route: 048
     Dates: start: 20110209
  26. DIART [Concomitant]
     Active Substance: AZOSEMIDE
     Indication: CARDIAC FAILURE CHRONIC
     Dosage: 60 MG, QD
     Route: 048
     Dates: start: 20101015, end: 20110205
  27. ALDACTONE [Concomitant]
     Active Substance: SPIRONOLACTONE
     Indication: CARDIAC FAILURE CHRONIC
     Dosage: 25 MG, QD
     Route: 048
     Dates: start: 20101015, end: 20110205
  28. ALISKIREN [Suspect]
     Active Substance: ALISKIREN
     Dosage: 300 MG
     Route: 048
     Dates: start: 20110610, end: 20140623

REACTIONS (17)
  - Depressed level of consciousness [Recovered/Resolved]
  - Cardiac failure [Recovered/Resolved]
  - Rhinitis [Recovered/Resolved]
  - Dyspnoea [Unknown]
  - General physical health deterioration [Recovered/Resolved]
  - Face oedema [Recovered/Resolved]
  - Heart rate decreased [Unknown]
  - Pleural effusion [Unknown]
  - Ventricular tachycardia [Recovered/Resolved]
  - Confusional state [Recovered/Resolved]
  - Blood pressure decreased [Recovered/Resolved]
  - Pulmonary congestion [Unknown]
  - Hypotension [Recovered/Resolved]
  - Cardiac failure [Recovered/Resolved]
  - Discomfort [Unknown]
  - Oedema peripheral [Recovered/Resolved]
  - Ejection fraction [Unknown]

NARRATIVE: CASE EVENT DATE: 20100611
